FAERS Safety Report 9539334 (Version 1)
Quarter: 2013Q3

REPORT INFORMATION
  Report Type: Spontaneous
  Country: US (occurrence: US)
  Receive Date: 20130920
  Receipt Date: 20130920
  Transmission Date: 20140515
  Serious: Yes (Other)
  Sender: FDA-Public Use
  Company Number: PHEH2013US019520

PATIENT
  Sex: Male

DRUGS (3)
  1. GILENYA [Suspect]
     Dosage: (MATERNAL DOSE: 0.5MG/DAY)
     Route: 064
  2. CITALOPRAM [Concomitant]
     Dosage: (MATERNAL DOSE: 40 MG/DAY)
     Route: 064
  3. METFORMIN [Concomitant]
     Dosage: (MATERNAL DOSE: 500, BID)
     Route: 064

REACTIONS (2)
  - Cardiac murmur [Unknown]
  - Foetal exposure during pregnancy [Unknown]
